FAERS Safety Report 6271969-8 (Version None)
Quarter: 2009Q3

REPORT INFORMATION
  Report Type: 
  Country: None (occurrence: None)
  Receive Date: 20090717
  Receipt Date: 20090709
  Transmission Date: 20100115
  Serious: Yes (Other)
  Sender: FDA-Public Use
  Company Number: B0579168A

PATIENT
  Sex: Female

DRUGS (7)
  1. ALLI [Suspect]
     Dosage: 60MG THREE TIMES PER DAY
     Route: 048
     Dates: start: 20090520, end: 20090530
  2. BENDROFLUMETHIAZIDE [Concomitant]
  3. ASPIRIN [Concomitant]
  4. MOXONIDINE [Concomitant]
  5. DOXAZOSIN MESYLATE [Concomitant]
  6. ATORVASTATIN CALCIUM [Concomitant]
  7. LOSARTAN POTASSIUM [Concomitant]

REACTIONS (22)
  - ABDOMINAL DISTENSION [None]
  - ABDOMINAL PAIN UPPER [None]
  - ALOPECIA [None]
  - AMNESIA [None]
  - CHEST PAIN [None]
  - CIRCULATORY COLLAPSE [None]
  - CONFUSIONAL STATE [None]
  - DEHYDRATION [None]
  - DIARRHOEA [None]
  - DIZZINESS [None]
  - DYSPNOEA [None]
  - FACE INJURY [None]
  - FALL [None]
  - HYPOTENSION [None]
  - LOSS OF CONSCIOUSNESS [None]
  - MALAISE [None]
  - MIDDLE INSOMNIA [None]
  - PALPITATIONS [None]
  - PANIC ATTACK [None]
  - PERIORBITAL HAEMATOMA [None]
  - PRESYNCOPE [None]
  - TONGUE DISCOLOURATION [None]
